FAERS Safety Report 8835220 (Version 2)
Quarter: 2012Q4

REPORT INFORMATION
  Report Type: 
  Country: US (occurrence: US)
  Receive Date: 20121011
  Receipt Date: 20121105
  Transmission Date: 20130627
  Serious: No
  Sender: FDA-Public Use
  Company Number: US-PFIZER INC-2012248645

PATIENT
  Age: 72 Year
  Sex: Male

DRUGS (3)
  1. SUTENT [Suspect]
     Indication: METASTATIC RENAL CELL CARCINOMA
     Dosage: 50 mg, (first 28 days), cyclic
     Dates: start: 200801
  2. SUTENT [Suspect]
     Indication: KIDNEY CANCER
     Dosage: 37.5 mg (12.5 mg + 25 mg), cyclic
     Dates: start: 20080212
  3. SUTENT [Suspect]
     Dosage: 37.5 mg, (4 wks on 2 wks off)
     Route: 048
     Dates: start: 200811

REACTIONS (3)
  - Limb discomfort [Unknown]
  - Pain [Not Recovered/Not Resolved]
  - Intervertebral disc degeneration [Not Recovered/Not Resolved]
